FAERS Safety Report 7681190-4 (Version None)
Quarter: 2011Q3

REPORT INFORMATION
  Report Type: 
  Country: None (occurrence: None)
  Receive Date: 20110812
  Receipt Date: 20060103
  Transmission Date: 20111222
  Serious: Yes (Other)
  Sender: FDA-Public Use
  Company Number: GB-BAXTER-2011BH025612

PATIENT
  Age: 76 Year
  Sex: Male

DRUGS (2)
  1. INSULIN [Concomitant]
     Indication: TYPE 1 DIABETES MELLITUS
     Route: 065
  2. EXTRANEAL [Suspect]
     Indication: DIALYSIS
     Route: 033

REACTIONS (3)
  - CONVULSION [None]
  - HYPOGLYCAEMIA [None]
  - DEVICE INTERACTION [None]
